FAERS Safety Report 7652896-8 (Version None)
Quarter: 2011Q3

REPORT INFORMATION
  Report Type: 
  Country: None (occurrence: None)
  Receive Date: 20110803
  Receipt Date: 20110725
  Transmission Date: 20111222
  Serious: Yes (Hospitalization, Other)
  Sender: FDA-Public Use
  Company Number: US-BAYER-201039897NA

PATIENT
  Age: 27 Year
  Sex: Female
  Weight: 81.633 kg

DRUGS (8)
  1. CIPROFLOXACIN HCL [Concomitant]
     Indication: ABDOMINAL PAIN UPPER
  2. LORTAB [Concomitant]
     Indication: NAUSEA
  3. FLAGYL [Concomitant]
     Indication: ABDOMINAL PAIN UPPER
  4. CIPROFLOXACIN HCL [Concomitant]
     Indication: NAUSEA
  5. FLAGYL [Concomitant]
     Indication: NAUSEA
  6. DROSPIRENONE AND ETHINYL ESTRADIOL [Suspect]
     Dosage: UNK
     Dates: start: 20081101, end: 20090301
  7. LORTAB [Concomitant]
     Indication: ABDOMINAL PAIN UPPER
  8. BACTRIM [Concomitant]
     Indication: CHOLELITHIASIS
     Dosage: UNK
     Dates: start: 20091221

REACTIONS (2)
  - ABDOMINAL PAIN [None]
  - CHOLELITHIASIS [None]
